FAERS Safety Report 20369004 (Version 1)
Quarter: 2022Q1

REPORT INFORMATION
  Report Type: Spontaneous
  Country: US (occurrence: None)
  Receive Date: 20220121
  Receipt Date: 20220121
  Transmission Date: 20220424
  Serious: Yes (Death)
  Sender: FDA-Public Use
  Company Number: None

PATIENT
  Age: 89 Year
  Sex: Female

DRUGS (14)
  1. OLUMIANT [Suspect]
     Active Substance: BARICITINIB
     Indication: Rheumatoid arthritis
     Dosage: FREQUENCY : DAILY;?
     Route: 048
     Dates: start: 20200512, end: 20220111
  2. BISACODYL [Concomitant]
  3. ACETAMINOPHEN [Concomitant]
  4. VITAMINS [Concomitant]
     Active Substance: VITAMINS
  5. DULOXETINE DR [Concomitant]
  6. ELIQUIS [Concomitant]
  7. FERROUS SULFATE [Concomitant]
  8. FUROSEMIDE [Concomitant]
  9. GLIPIZIDE [Concomitant]
  10. ISOSORBIDE MONONITRATE [Concomitant]
  11. LISINOPRIL [Concomitant]
     Active Substance: LISINOPRIL
  12. MELOXICAM [Concomitant]
  13. TRAMADOL [Concomitant]
     Active Substance: TRAMADOL
  14. VITAMIN D2 [Concomitant]
     Active Substance: ERGOCALCIFEROL

REACTIONS (1)
  - COVID-19 [None]

NARRATIVE: CASE EVENT DATE: 20220111
